FAERS Safety Report 5376970-4 (Version None)
Quarter: 2007Q2

REPORT INFORMATION
  Report Type: 
  Country: None (occurrence: None)
  Receive Date: 20070530
  Receipt Date: 20070220
  Transmission Date: 20071010
  Serious: No
  Sender: FDA-Public Use
  Company Number: 2007PV030378

PATIENT
  Age: 69 Year
  Sex: Male
  Weight: 94.8018 kg

DRUGS (2)
  1. BYETTA [Suspect]
     Dosage: 10 MCG; BID; SC, 5 MCG; BID; SC
     Route: 058
     Dates: start: 20070101, end: 20070201
  2. BYETTA [Suspect]
     Dosage: 10 MCG; BID; SC, 5 MCG; BID; SC
     Route: 058
     Dates: start: 20070201

REACTIONS (5)
  - BLOOD GLUCOSE INCREASED [None]
  - EYE PRURITUS [None]
  - NASAL CONGESTION [None]
  - NAUSEA [None]
  - WEIGHT DECREASED [None]
